FAERS Safety Report 7755758-0 (Version None)
Quarter: 2011Q3

REPORT INFORMATION
  Report Type: 
  Country: None (occurrence: None)
  Receive Date: 20110916
  Receipt Date: 20110913
  Transmission Date: 20111222
  Serious: Yes (Life-Threatening, Hospitalization, Other)
  Sender: FDA-Public Use
  Company Number: PHHY2011CA78127

PATIENT
  Sex: Male

DRUGS (3)
  1. TASIGNA [Suspect]
     Indication: GASTROINTESTINAL STROMAL TUMOUR
     Dosage: 400 MG, BID
     Route: 048
     Dates: start: 20110624, end: 20110814
  2. TRAMADOL HYDROCHLORIDE/ACETAMINOPHEN [Concomitant]
  3. DECADRON [Concomitant]
     Dosage: 4 MG, UPTO 4 TIMES PER WEEK
     Route: 048

REACTIONS (8)
  - POLYDIPSIA [None]
  - WEIGHT DECREASED [None]
  - CONFUSIONAL STATE [None]
  - DRUG INTOLERANCE [None]
  - FATIGUE [None]
  - DIABETES MELLITUS [None]
  - POLYURIA [None]
  - HYPERGLYCAEMIA [None]
